FAERS Safety Report 8063707-3 (Version None)
Quarter: 2012Q1

REPORT INFORMATION
  Report Type: 
  Country: None (occurrence: None)
  Receive Date: 20120123
  Receipt Date: 20120111
  Transmission Date: 20120608
  Serious: Yes (Hospitalization)
  Sender: FDA-Public Use
  Company Number: US-BAYER-2011-052523

PATIENT
  Age: 22 Year
  Sex: Female
  Weight: 82 kg

DRUGS (3)
  1. YAZ [Suspect]
     Indication: PRODUCT USED FOR UNKNOWN INDICATION
     Dosage: UNK
     Route: 048
     Dates: start: 20090101
  2. LORTAB [Concomitant]
  3. IBUPROFEN [Concomitant]

REACTIONS (3)
  - CHOLELITHIASIS [None]
  - INJURY [None]
  - PAIN [None]
